FAERS Safety Report 4705863-8 (Version None)
Quarter: 2005Q2

REPORT INFORMATION
  Report Type: 
  Country: None (occurrence: None)
  Receive Date: 20050629
  Receipt Date: 20050324
  Transmission Date: 20051028
  Serious: Yes (Hospitalization)
  Sender: FDA-Public Use
  Company Number: 05P-163-0295164-00

PATIENT
  Age: 52 Year
  Sex: Female

DRUGS (12)
  1. HUMIRA [Suspect]
     Indication: RHEUMATOID ARTHRITIS
     Dosage: 40 MG, 1 IN 2 WK, SUBCUTANEOUS
     Route: 058
     Dates: start: 20040901, end: 20050101
  2. HYDROXYCHLOROQUINE PHOSPHATE [Concomitant]
  3. ALENDRONATE SODIUM [Concomitant]
  4. NABUMETONE [Concomitant]
  5. RAMIPRIL [Concomitant]
  6. DYAZIDE [Concomitant]
  7. ATENOLOL [Concomitant]
  8. FLUOXETINE HCL [Concomitant]
  9. ZOLPIDEM TARTRATE [Concomitant]
  10. PROPACET 100 [Concomitant]
  11. FLUTICASONE PROPIONATE [Concomitant]
  12. CLARINEX [Concomitant]

REACTIONS (1)
  - PNEUMONIA BACTERIAL [None]
